FAERS Safety Report 8080980-6 (Version None)
Quarter: 2012Q1

REPORT INFORMATION
  Report Type: 
  Country: None (occurrence: None)
  Receive Date: 20120130
  Receipt Date: 20120125
  Transmission Date: 20120608
  Serious: Yes (Hospitalization)
  Sender: FDA-Public Use
  Company Number: JP-MERCK-1201USA03648

PATIENT
  Age: 27 Year
  Sex: Female

DRUGS (1)
  1. SINEMET [Suspect]
     Indication: PARKINSONISM
     Route: 048

REACTIONS (2)
  - PARKINSON'S DISEASE [None]
  - MATERNAL EXPOSURE DURING PREGNANCY [None]
